FAERS Safety Report 8905441 (Version 2)
Quarter: 2015Q2

REPORT INFORMATION
  Report Type: Report from Study
  Country: CA (occurrence: CA)
  Receive Date: 20121112
  Receipt Date: 20150619
  Transmission Date: 20150821
  Serious: Yes (Hospitalization)
  Sender: FDA-Public Use
  Company Number: CA-UCBSA-070658

PATIENT
  Age: 49 Year
  Sex: Female
  Weight: 66 kg

DRUGS (6)
  1. NOVOTYPTIN [Concomitant]
     Indication: SLEEP DISORDER
     Dosage: 160 MG, ONCE DAILY (QD)
     Route: 048
  2. CERTOLIZUMAB PEGOL RA [Suspect]
     Active Substance: CERTOLIZUMAB PEGOL
     Indication: RHEUMATOID ARTHRITIS
     Dosage: 200 MG, EV 2 WEEKS(QOW)
     Route: 058
     Dates: start: 20100813, end: 2012
  3. CERTOLIZUMAB PEGOL RA [Suspect]
     Active Substance: CERTOLIZUMAB PEGOL
     Dosage: Q2 WX3
     Route: 058
     Dates: start: 20100703, end: 20100731
  4. MTX [Concomitant]
     Active Substance: METHOTREXATE SODIUM
     Indication: RHEUMATOID ARTHRITIS
     Dosage: 25 MG, WEEKLY (QW)
     Route: 058
     Dates: start: 200504
  5. IMOVANE [Concomitant]
     Active Substance: ZOPICLONE
     Indication: PAIN
     Dosage: 7.5 MG, AS NEEDED (PRN)
     Route: 048
  6. FOSAMAX [Concomitant]
     Active Substance: ALENDRONATE SODIUM
     Indication: OSTEOPENIA
     Dosage: 70 MG, WEEKLY (QW)
     Route: 048

REACTIONS (1)
  - Appendicitis [Recovered/Resolved]

NARRATIVE: CASE EVENT DATE: 20121028
